FAERS Safety Report 6737506-6 (Version None)
Quarter: 2010Q2

REPORT INFORMATION
  Report Type: 
  Country: None (occurrence: None)
  Receive Date: 20100524
  Receipt Date: 20100514
  Transmission Date: 20101027
  Serious: Yes (Hospitalization, Other)
  Sender: FDA-Public Use
  Company Number: JP-BAYER-201010302BYL

PATIENT
  Age: 79 Year
  Sex: Male
  Weight: 63 kg

DRUGS (15)
  1. NEXAVAR [Suspect]
     Indication: HEPATIC NEOPLASM MALIGNANT
     Dosage: TOTAL DAILY DOSE: 800 MG  UNIT DOSE: 200 MG
     Route: 048
     Dates: start: 20100109, end: 20100113
  2. NEXAVAR [Suspect]
     Dosage: TOTAL DAILY DOSE: 400 MG  UNIT DOSE: 200 MG
     Route: 048
     Dates: start: 20100120, end: 20100121
  3. NEXAVAR [Suspect]
     Dosage: UNIT DOSE: 200 MG
     Route: 048
     Dates: start: 20100220, end: 20100303
  4. NEXAVAR [Suspect]
     Dosage: UNIT DOSE: 200 MG
     Route: 048
     Dates: start: 20100304, end: 20100322
  5. NEXAVAR [Suspect]
     Dosage: UNIT DOSE: 200 MG
     Route: 048
     Dates: start: 20100328, end: 20100407
  6. NEXAVAR [Suspect]
     Dosage: UNIT DOSE: 200 MG
     Route: 048
     Dates: start: 20100323, end: 20100327
  7. VOLTAREN [Suspect]
     Indication: PAIN
     Route: 054
     Dates: start: 20091224
  8. FAMOTIDINE [Concomitant]
     Route: 048
  9. PARIET [Concomitant]
     Indication: GASTRIC ULCER
     Dosage: UNIT DOSE: 10 MG
     Route: 048
     Dates: start: 20100222
  10. WARFARIN SODIUM [Concomitant]
     Indication: ATRIAL FIBRILLATION
     Dosage: UNIT DOSE: 1 MG
     Route: 048
     Dates: start: 20050906, end: 20100430
  11. ADALAT CC [Concomitant]
     Indication: HYPERTENSION
     Dosage: UNIT DOSE: 20 MG
     Route: 048
     Dates: start: 20020612
  12. MICARDIS [Concomitant]
     Indication: HYPERTENSION
     Dosage: UNIT DOSE: 40 MG
     Route: 048
     Dates: start: 20020612
  13. BARACLUDE [Concomitant]
     Indication: HEPATITIS B
     Dosage: UNIT DOSE: 0.5 MG
     Route: 048
     Dates: start: 20090221
  14. URSO 250 [Concomitant]
     Indication: HEPATITIS B
     Dosage: UNIT DOSE: 100 MG
     Route: 048
     Dates: start: 20050906
  15. PROTON PUMP INHIBITORS [Concomitant]
     Route: 065

REACTIONS (4)
  - COLITIS [None]
  - GASTRIC ULCER HAEMORRHAGE [None]
  - MALAISE [None]
  - RASH [None]
